FAERS Safety Report 14807178 (Version 1)
Quarter: 2018Q2

REPORT INFORMATION
  Report Type: Spontaneous
  Country: SI (occurrence: SI)
  Receive Date: 20180425
  Receipt Date: 20180425
  Transmission Date: 20180711
  Serious: Yes (Hospitalization, Other)
  Sender: FDA-Public Use
  Company Number: SI-BAYER-2018-073560

PATIENT
  Age: 70 Year
  Sex: Male

DRUGS (12)
  1. ADEMPAS [Suspect]
     Active Substance: RIOCIGUAT
     Indication: PULMONARY HYPERTENSION
     Dosage: UNK
     Route: 048
     Dates: start: 20170429
  2. PLIVIT [Concomitant]
     Dosage: 35 GTT, OW
  3. NITRO-DUR [Concomitant]
     Active Substance: NITROGLYCERIN
     Dosage: UNK
  4. EDEMID [Concomitant]
     Active Substance: FUROSEMIDE
     Dosage: 40 MG, QOD
  5. CALCIUM CARBONATE. [Concomitant]
     Active Substance: CALCIUM CARBONATE
     Dosage: UNK
  6. AMLOPIN [Concomitant]
     Active Substance: AMLODIPINE BESYLATE
     Dosage: UNK
  7. MAREVAN [Concomitant]
     Active Substance: WARFARIN SODIUM
     Dosage: UNK
  8. ZALDIAR [Concomitant]
     Active Substance: ACETAMINOPHEN\TRAMADOL HYDROCHLORIDE
     Dosage: UNK
  9. LANITOP [Concomitant]
     Active Substance: METILDIGOXIN
     Dosage: 0.5 DF, QD
  10. EUTHYROX [Concomitant]
     Active Substance: LEVOTHYROXINE SODIUM
     Indication: HYPOTHYROIDISM
     Dosage: 25 MCG/24HR, UNK
  11. SANVAL [Concomitant]
     Active Substance: ZOLPIDEM TARTRATE
     Dosage: UNK
  12. CONCOR [Concomitant]
     Active Substance: BISOPROLOL FUMARATE
     Dosage: 2.5 MG, BID

REACTIONS (4)
  - Gastrooesophageal reflux disease [None]
  - Spinal fracture [None]
  - Gastrooesophageal reflux disease [Recovering/Resolving]
  - Chest pain [None]

NARRATIVE: CASE EVENT DATE: 2017
